FAERS Safety Report 16964500 (Version 1)
Quarter: 2019Q4

REPORT INFORMATION
  Report Type: Report from Study
  Country: None (occurrence: CA)
  Receive Date: 20191028
  Receipt Date: 20191028
  Transmission Date: 20200122
  Serious: Yes (Hospitalization)
  Sender: FDA-Public Use
  Company Number: CA-UNICHEM PHARMACEUTICALS (USA) INC-UCM201910-000601

PATIENT

DRUGS (2)
  1. VALSARTAN. [Suspect]
     Active Substance: VALSARTAN
     Indication: CARDIAC FAILURE
  2. SACUBUTRIL [Suspect]
     Active Substance: SACUBITRIL
     Indication: CARDIAC FAILURE

REACTIONS (1)
  - Condition aggravated [Unknown]
